FAERS Safety Report 4355396-6 (Version None)
Quarter: 2004Q2

REPORT INFORMATION
  Report Type: 
  Country: None (occurrence: None)
  Receive Date: 20040504
  Receipt Date: 20020731
  Transmission Date: 20050107
  Serious: No
  Sender: FDA-Public Use
  Company Number: 200303131

PATIENT
  Age: 27 Year
  Sex: Female

DRUGS (5)
  1. TYLENOL [Suspect]
     Indication: ACCIDENTAL EXPOSURE
     Dosage: PO
     Route: 048
  2. BENZATHINE PENICILLIN G [Suspect]
     Indication: ACCIDENTAL EXPOSURE
  3. UNSPECIFIED CONTRACEPTIVE DRUG [Suspect]
     Indication: ACCIDENTAL EXPOSURE
  4. FLUOXETINE [Suspect]
     Indication: ACCIDENTAL EXPOSURE
  5. CLONAZEPAM [Suspect]
     Indication: ACCIDENTAL EXPOSURE

REACTIONS (2)
  - ACCIDENTAL EXPOSURE [None]
  - SOMNOLENCE [None]
